FAERS Safety Report 5383011-1 (Version None)
Quarter: 2007Q2

REPORT INFORMATION
  Report Type: 
  Country: None (occurrence: None)
  Receive Date: 20070629
  Receipt Date: 20061227
  Transmission Date: 20071010
  Serious: Yes (Other)
  Sender: FDA-Public Use
  Company Number: US200612004541

PATIENT
  Sex: Male

DRUGS (3)
  1. HUMULIN R [Suspect]
     Indication: DIABETES MELLITUS
     Dates: start: 19960101, end: 20040101
  2. HUMULIN N [Suspect]
     Indication: DIABETES MELLITUS
     Dates: start: 19960101, end: 20040101
  3. HUMALOG MIX 75/25 [Suspect]
     Indication: DIABETES MELLITUS
     Dosage: PER SLIDING SCALE BASED ON BLOOD SUGARS
     Dates: start: 20040101

REACTIONS (8)
  - INJECTION SITE BRUISING [None]
  - INJECTION SITE HAEMORRHAGE [None]
  - INJECTION SITE INJURY [None]
  - LEUKAEMIA [None]
  - NEUROPATHY PERIPHERAL [None]
  - PERONEAL MUSCULAR ATROPHY [None]
  - WHITE BLOOD CELL COUNT INCREASED [None]
  - WOUND [None]
